FAERS Safety Report 24189948 (Version 2)
Quarter: 2024Q3

REPORT INFORMATION
  Report Type: Spontaneous
  Country: US (occurrence: US)
  Receive Date: 20240808
  Receipt Date: 20240913
  Transmission Date: 20241016
  Serious: Yes (Hospitalization)
  Sender: TEVA
  Company Number: US-TEVA-VS-3228086

PATIENT
  Age: 72 Year
  Sex: Male

DRUGS (2)
  1. CYCLOSPORINE [Suspect]
     Active Substance: CYCLOSPORINE
     Indication: Immunosuppressant drug therapy
     Dosage: 125MG IN THE MORNING, 100MG IN THE EVENING
     Route: 065
  2. MYCOPHENOLATE MOFETIL [Suspect]
     Active Substance: MYCOPHENOLATE MOFETIL
     Indication: Immunosuppressant drug therapy
     Dosage: MYCOPHENOLIC-ACID
     Route: 065

REACTIONS (6)
  - Gastroenteritis astroviral [Recovering/Resolving]
  - Hyperglycaemia [Recovering/Resolving]
  - Acute kidney injury [Recovering/Resolving]
  - Encephalitis viral [Recovering/Resolving]
  - Acidosis hyperchloraemic [Recovering/Resolving]
  - Toxicity to various agents [Recovering/Resolving]
